FAERS Safety Report 7060366-3 (Version None)
Quarter: 2010Q4

REPORT INFORMATION
  Report Type: 
  Country: None (occurrence: None)
  Receive Date: 20101025
  Receipt Date: 20101018
  Transmission Date: 20110411
  Serious: Yes (Hospitalization)
  Sender: FDA-Public Use
  Company Number: D0068779A

PATIENT
  Age: 76 Year
  Sex: Female

DRUGS (12)
  1. AUGMENTIN '125' [Suspect]
     Indication: PNEUMONIA
     Dosage: 1000MG TWICE PER DAY
     Route: 048
     Dates: start: 20100805, end: 20100816
  2. CLARITHROMYCIN [Suspect]
     Indication: PNEUMONIA
     Dosage: 500MG TWICE PER DAY
     Route: 048
     Dates: start: 20100805, end: 20100816
  3. URBASON [Suspect]
     Dosage: 8MG PER DAY
     Route: 048
     Dates: start: 20100805, end: 20100815
  4. URBASON [Suspect]
     Dosage: 4MG PER DAY
     Route: 048
     Dates: start: 20100805, end: 20100817
  5. PANTOPRAZOLE SODIUM [Concomitant]
     Dosage: 40MG PER DAY
     Route: 048
  6. AMLODIPINE [Concomitant]
     Dosage: 5MG TWICE PER DAY
     Route: 048
  7. TORASEMIDE [Concomitant]
     Dosage: 10MG PER DAY
     Route: 048
  8. HYDROCHLOROTHIAZIDE [Concomitant]
     Dosage: 25MG PER DAY
     Route: 048
  9. LOCOL [Concomitant]
     Dosage: 80MG PER DAY
     Route: 048
  10. RAMIPRIL [Concomitant]
     Dosage: 5MG TWICE PER DAY
     Route: 048
  11. FALITHROM [Concomitant]
     Indication: ATRIAL FIBRILLATION
     Route: 048
  12. CLOPIDOGREL [Concomitant]
     Indication: CARDIOVASCULAR EVENT PROPHYLAXIS
     Dosage: 75MG PER DAY
     Route: 048
     Dates: start: 20100601

REACTIONS (2)
  - CLOSTRIDIUM DIFFICILE COLITIS [None]
  - DRUG INTERACTION [None]
